FAERS Safety Report 4771143-8 (Version None)
Quarter: 2005Q3

REPORT INFORMATION
  Report Type: 
  Country: None (occurrence: None)
  Receive Date: 20050912
  Receipt Date: 20050606
  Transmission Date: 20060218
  Serious: No
  Sender: FDA-Public Use
  Company Number: 2005-01133

PATIENT
  Age: 75 Year
  Sex: Female

DRUGS (9)
  1. VELCADE [Suspect]
     Indication: MULTIPLE MYELOMA
     Dosage: 2.70 MG,
     Dates: start: 20041123, end: 20041207
  2. POTASSIUM (POTASSIUM) [Concomitant]
  3. TAPAZOLE [Concomitant]
  4. TOPROL-XL [Concomitant]
  5. PREVACID [Concomitant]
  6. ALLOPURINOL [Concomitant]
  7. FOLATE SODIUM (FOLATE SODIUM) [Concomitant]
  8. HUMIBID (GUAIFENESIN) [Concomitant]
  9. DEXAMETHASONE [Concomitant]

REACTIONS (1)
  - HERPES ZOSTER [None]
